FAERS Safety Report 10251262 (Version 1)
Quarter: 2014Q2

REPORT INFORMATION
  Report Type: Spontaneous
  Country: US (occurrence: US)
  Receive Date: 20140621
  Receipt Date: 20140621
  Transmission Date: 20141212
  Serious: Yes (Hospitalization, Other)
  Sender: FDA-Public Use
  Company Number: US-GILEAD-2014-0106117

PATIENT
  Sex: Female

DRUGS (12)
  1. LETAIRIS [Suspect]
     Indication: PULMONARY HYPERTENSION
     Dosage: 5 MG, QD
     Route: 065
     Dates: start: 20110511
  2. METOPROLOL [Concomitant]
  3. BENZONATATE [Concomitant]
  4. IPRATROPIUM [Concomitant]
  5. ALBUTEROL                          /00139501/ [Concomitant]
  6. LORTAB                             /00607101/ [Concomitant]
  7. COLCHICINE [Concomitant]
  8. ALLOPURINOL [Concomitant]
  9. TORSEMIDE [Concomitant]
  10. COUMADIN                           /00014802/ [Concomitant]
  11. FLEXERIL                           /00428402/ [Concomitant]
  12. SPIRONOLACTONE [Concomitant]

REACTIONS (2)
  - Intestinal obstruction [Not Recovered/Not Resolved]
  - Dyspnoea [Recovered/Resolved]
